FAERS Safety Report 20803517 (Version 1)
Quarter: 2022Q2

REPORT INFORMATION
  Report Type: Spontaneous
  Country: US (occurrence: US)
  Receive Date: 20220509
  Receipt Date: 20220509
  Transmission Date: 20220721
  Serious: Yes (Other)
  Sender: FDA-Public Use
  Company Number: US-ANIPHARMA-2022-US-011000

PATIENT
  Sex: 0

DRUGS (2)
  1. PHENYTOIN SODIUM [Suspect]
     Active Substance: PHENYTOIN SODIUM
     Indication: Partial seizures
  2. CENOBAMATE [Suspect]
     Active Substance: CENOBAMATE
     Indication: Partial seizures

REACTIONS (2)
  - Drug interaction [Recovered/Resolved]
  - Diplopia [Recovered/Resolved]
